FAERS Safety Report 16862242 (Version 5)
Quarter: 2022Q1

REPORT INFORMATION
  Report Type: Spontaneous
  Country: JP (occurrence: JP)
  Receive Date: 20190927
  Receipt Date: 20220130
  Transmission Date: 20220423
  Serious: Yes (Death, Life-Threatening, Other)
  Sender: FDA-Public Use
  Company Number: JP-JAZZ-2019-JP-013328

PATIENT
  Age: 44 Year
  Sex: Male

DRUGS (4)
  1. DEFITELIO [Suspect]
     Active Substance: DEFIBROTIDE SODIUM
     Indication: Venoocclusive liver disease
     Dosage: 25 MG/KG/DAY
     Route: 042
     Dates: start: 20190918, end: 20190919
  2. DEFITELIO [Suspect]
     Active Substance: DEFIBROTIDE SODIUM
     Indication: Graft versus host disease
     Dosage: 12.5 MG/KG/DAY
     Route: 042
     Dates: start: 20190918, end: 20190920
  3. THROMBOMODULIN ALFA [Suspect]
     Active Substance: THROMBOMODULIN ALFA
     Indication: Venoocclusive liver disease
     Dosage: UNK
     Dates: start: 20190917, end: 20190917
  4. THROMBOMODULIN ALFA [Suspect]
     Active Substance: THROMBOMODULIN ALFA
     Indication: Lower gastrointestinal haemorrhage

REACTIONS (4)
  - Thrombotic microangiopathy [Fatal]
  - Venoocclusive liver disease [Fatal]
  - Lower gastrointestinal haemorrhage [Not Recovered/Not Resolved]
  - Off label use [Unknown]

NARRATIVE: CASE EVENT DATE: 20190805
